FAERS Safety Report 26203614 (Version 1)
Quarter: 2025Q4

REPORT INFORMATION
  Report Type: Spontaneous
  Country: US (occurrence: US)
  Receive Date: 20251226
  Receipt Date: 20251226
  Transmission Date: 20260117
  Serious: No
  Sender: BAYER HEALTHCARE PHARMACEUTICALS INC.
  Company Number: US-BAYER-2025A168311

PATIENT
  Age: 51 Year
  Sex: Female

DRUGS (1)
  1. MIRENA [Suspect]
     Active Substance: LEVONORGESTREL
     Dosage: 20?G/DAY
     Route: 015
     Dates: start: 20251212

REACTIONS (4)
  - Headache [Not Recovered/Not Resolved]
  - Procedural pain [Recovered/Resolved]
  - Nausea [None]
  - Ocular discomfort [None]

NARRATIVE: CASE EVENT DATE: 20251212
